FAERS Safety Report 7758003-5 (Version None)
Quarter: 2011Q3

REPORT INFORMATION
  Report Type: 
  Country: None (occurrence: None)
  Receive Date: 20110919
  Receipt Date: 20110912
  Transmission Date: 20111222
  Serious: No
  Sender: FDA-Public Use
  Company Number: US-BIOGENIDEC-2011BI002547

PATIENT
  Age: 38 Year
  Sex: Male

DRUGS (2)
  1. TYSABRI [Suspect]
     Indication: MULTIPLE SCLEROSIS
     Route: 042
     Dates: start: 20081202
  2. BENADRYL [Concomitant]
     Indication: PREMEDICATION

REACTIONS (3)
  - APATHY [None]
  - DEPRESSED MOOD [None]
  - FATIGUE [None]
